FAERS Safety Report 8212076 (Version 2)
Quarter: 2012Q4

REPORT INFORMATION
  Report Type: 
  Country: US (occurrence: US)
  Receive Date: 20111029
  Receipt Date: 20120928
  Transmission Date: 20130627
  Serious: Yes (Other)
  Sender: FDA-Public Use
  Company Number: US-AMGEN-USASP2011011810

PATIENT
  Age: 45 Year
  Sex: Male
  Weight: 104 kg

DRUGS (9)
  1. ENBREL [Suspect]
     Indication: RHEUMATOID ARTHRITIS
     Dosage: 25 mg, q2wk
     Dates: start: 200304
  2. ENBREL [Suspect]
     Indication: PSORIASIS
     Dosage: 50 mg, qwk
  3. ENBREL [Suspect]
     Indication: PSORIATIC ARTHROPATHY
  4. TREXALL [Concomitant]
     Indication: RHEUMATOID ARTHRITIS
  5. TRICOR                             /00090101/ [Concomitant]
  6. HYDROCODONE [Concomitant]
  7. SIMVASTATIN [Concomitant]
  8. GLYBURIDE [Concomitant]
  9. CYCLOSPORINE [Concomitant]
     Dosage: UNK
     Dates: end: 201005

REACTIONS (15)
  - Mycosis fungoides [Unknown]
  - Drug effect incomplete [Recovered/Resolved]
  - Herpes virus infection [Unknown]
  - Abdominal discomfort [Unknown]
  - Salivary hypersecretion [Unknown]
  - Photosensitivity reaction [Unknown]
  - Alopecia [Unknown]
  - Dyspepsia [Unknown]
  - Nocturia [Unknown]
  - Arthritis [Unknown]
  - Insomnia [Unknown]
  - Asthenia [Unknown]
  - Muscle spasms [Unknown]
  - Blood pressure increased [Unknown]
  - Psoriasis [Unknown]
